FAERS Safety Report 7811107-0 (Version None)
Quarter: 2011Q4

REPORT INFORMATION
  Report Type: 
  Country: None (occurrence: None)
  Receive Date: 20111013
  Receipt Date: 20111003
  Transmission Date: 20120403
  Serious: Yes (Other)
  Sender: FDA-Public Use
  Company Number: CN-CELGENEUS-035-20785-11100641

PATIENT

DRUGS (6)
  1. THALIDOMIDE [Suspect]
     Indication: MULTIPLE MYELOMA
     Dosage: 100 MILLIGRAM
     Route: 048
  2. DEXAMETHASONE [Concomitant]
     Indication: MULTIPLE MYELOMA
     Dosage: 20-40
     Route: 065
  3. PREDNISONE [Concomitant]
     Indication: MULTIPLE MYELOMA
     Dosage: 60 MILLIGRAM/SQ. METER
  4. HEPARIN LMW [Concomitant]
     Indication: THROMBOSIS PROPHYLAXIS
     Dosage: 1000 U/10KG PER DAY
     Route: 058
  5. MELPHALAN HYDROCHLORIDE [Concomitant]
     Indication: MULTIPLE MYELOMA
     Dosage: 9 MILLIGRAM/SQ. METER
     Route: 065
  6. BORTEZOMIB [Concomitant]
     Indication: MULTIPLE MYELOMA
     Dosage: 1.0-1.3
     Route: 065

REACTIONS (13)
  - HAEMORRHAGE [None]
  - THROMBOSIS [None]
  - ANAEMIA [None]
  - FATIGUE [None]
  - NEUTROPENIA [None]
  - NEUROPATHY PERIPHERAL [None]
  - CONSTIPATION [None]
  - HERPES ZOSTER [None]
  - GASTROINTESTINAL DISORDER [None]
  - INFECTION [None]
  - RASH [None]
  - MULTIPLE MYELOMA [None]
  - THROMBOCYTOPENIA [None]
